FAERS Safety Report 14018521 (Version 2)
Quarter: 2017Q4

REPORT INFORMATION
  Report Type: Spontaneous
  Country: US (occurrence: US)
  Receive Date: 20170928
  Receipt Date: 20171004
  Transmission Date: 20180321
  Serious: Yes (Hospitalization, Other)
  Sender: FDA-Public Use
  Company Number: US-AMGEN-USASP2017146409

PATIENT
  Age: 70 Year
  Sex: Male

DRUGS (10)
  1. BEVACIZUMAB. [Suspect]
     Active Substance: BEVACIZUMAB
     Indication: CHRONIC LYMPHOCYTIC LEUKAEMIA
     Dosage: 15 MG/KG, UNK (AS PER PROTOCOL) (DAY 1 CYCLE 6)
     Route: 042
     Dates: start: 20100317
  2. RITUXIMAB. [Suspect]
     Active Substance: RITUXIMAB
     Indication: CHRONIC LYMPHOCYTIC LEUKAEMIA
     Dosage: 100 MG, UNK
     Route: 042
     Dates: start: 20100317
  3. RITUXIMAB. [Suspect]
     Active Substance: RITUXIMAB
     Dosage: 715 MG, Q3WK (715 MG,1 IN 3 WK)
     Route: 042
     Dates: start: 20100518
  4. CYCLOPHOSPHAMIDE. [Suspect]
     Active Substance: CYCLOPHOSPHAMIDE
     Indication: CHRONIC LYMPHOCYTIC LEUKAEMIA
     Dosage: 600 MG/M2, UNK
     Route: 042
     Dates: start: 20100317
  5. PENTOSTATIN. [Suspect]
     Active Substance: PENTOSTATIN
     Dosage: 3.82 MG, Q3WK (3.82 MG,1 IN 3 WK)
     Route: 042
     Dates: start: 20100518
  6. BEVACIZUMAB. [Suspect]
     Active Substance: BEVACIZUMAB
     Dosage: 1114 MG, Q3WK
     Route: 042
     Dates: start: 20100518
  7. RITUXIMAB. [Suspect]
     Active Substance: RITUXIMAB
     Dosage: 375 MG/M2, Q3WK (375 MG/M2,1 IN 3 WK)
     Route: 042
  8. PEGFILGRASTIM [Suspect]
     Active Substance: PEGFILGRASTIM
     Indication: CHRONIC LYMPHOCYTIC LEUKAEMIA
     Dosage: 6 MG, Q3WK
     Route: 058
     Dates: start: 20100317
  9. CYCLOPHOSPHAMIDE. [Suspect]
     Active Substance: CYCLOPHOSPHAMIDE
     Dosage: 1146 MG, Q3WK (1146 MG, 1 IN 3 WK)
     Route: 042
     Dates: start: 20100518
  10. PENTOSTATIN. [Suspect]
     Active Substance: PENTOSTATIN
     Indication: CHRONIC LYMPHOCYTIC LEUKAEMIA
     Dosage: 2 MG/M2, UNK
     Route: 042
     Dates: start: 20100317

REACTIONS (3)
  - Infection [Recovering/Resolving]
  - Blood creatinine increased [Unknown]
  - Blood creatinine [Recovering/Resolving]

NARRATIVE: CASE EVENT DATE: 20100518
